FAERS Safety Report 18116548 (Version 1)
Quarter: 2020Q3

REPORT INFORMATION
  Report Type: Spontaneous
  Country: CA (occurrence: CA)
  Receive Date: 20200805
  Receipt Date: 20200805
  Transmission Date: 20201103
  Serious: Yes (Other)
  Sender: FDA-Public Use
  Company Number: CA-TEVA-2020-CA-1808729

PATIENT
  Age: 58 Year
  Sex: Female

DRUGS (8)
  1. TELMISARTAN. [Concomitant]
     Active Substance: TELMISARTAN
  2. FLUCONAZOLE. [Concomitant]
     Active Substance: FLUCONAZOLE
  3. LEVOTHYROXINE. [Concomitant]
     Active Substance: LEVOTHYROXINE
  4. PYRIDOXINE [Concomitant]
     Active Substance: PYRIDOXINE
  5. PANTOPRAZOLE [Concomitant]
     Active Substance: PANTOPRAZOLE
  6. ISONIAZID. [Concomitant]
     Active Substance: ISONIAZID
  7. ATORVASTATIN [Concomitant]
     Active Substance: ATORVASTATIN
  8. CARBAMAZEPINE. [Suspect]
     Active Substance: CARBAMAZEPINE
     Indication: SEIZURE
     Route: 065

REACTIONS (11)
  - Vertigo [Unknown]
  - Ataxia [Unknown]
  - Hyponatraemia [Unknown]
  - Toxicity to various agents [Unknown]
  - Drug level above therapeutic [Unknown]
  - Gait disturbance [Unknown]
  - Nystagmus [Unknown]
  - Mucosal inflammation [Unknown]
  - Hypovolaemia [Unknown]
  - Confusional state [Unknown]
  - Febrile neutropenia [Unknown]
